FAERS Safety Report 9101026 (Version 3)
Quarter: 2013Q2

REPORT INFORMATION
  Report Type: Spontaneous
  Country: US (occurrence: US)
  Receive Date: 20130215
  Receipt Date: 20130409
  Transmission Date: 20140414
  Serious: No
  Sender: FDA-Public Use
  Company Number: US-BAYER-2013-016357

PATIENT
  Sex: Female

DRUGS (1)
  1. MIRENA [Suspect]
     Dosage: 20 MCG/24HR, CONT
     Route: 015
     Dates: start: 2012, end: 20130204

REACTIONS (5)
  - Device use error [None]
  - Abdominal pain lower [None]
  - Pain [None]
  - Discomfort [None]
  - Menorrhagia [None]
